FAERS Safety Report 10021295 (Version 4)
Quarter: 2014Q2

REPORT INFORMATION
  Report Type: Spontaneous
  Country: GB (occurrence: GB)
  Receive Date: 20140319
  Receipt Date: 20140521
  Transmission Date: 20141212
  Serious: Yes (Hospitalization, Other)
  Sender: FDA-Public Use
  Company Number: PHFR2014GB001650

PATIENT
  Sex: Male

DRUGS (4)
  1. CLOZARIL [Suspect]
     Indication: SCHIZOPHRENIA
     Dosage: UNK
     Route: 048
     Dates: start: 20031115
  2. CLOZARIL [Suspect]
     Dosage: 459 MG, DAILY (BEFORE 2010)
     Route: 048
  3. AMISULPRIDE [Concomitant]
     Indication: SCHIZOPHRENIA
     Dosage: 200 MG, BID
     Route: 048
     Dates: start: 201004
  4. SODIUM VALPROATE [Concomitant]
     Indication: SCHIZOPHRENIA
     Dosage: 750 MG, DAILY (250 MG MANE, 500 MG NOCTE)
     Route: 048

REACTIONS (3)
  - Schizophrenia [Recovering/Resolving]
  - Hallucination, auditory [Recovering/Resolving]
  - Suicidal ideation [Recovered/Resolved]
